FAERS Safety Report 13079889 (Version 1)
Quarter: 2017Q1

REPORT INFORMATION
  Report Type: Spontaneous
  Country: CN (occurrence: CN)
  Receive Date: 20170103
  Receipt Date: 20170103
  Transmission Date: 20170428
  Serious: Yes (Hospitalization, Other)
  Sender: FDA-Public Use
  Company Number: CN-ASTELLAS-2017US000020

PATIENT
  Age: 64 Year
  Sex: Male

DRUGS (7)
  1. ORNIDAZOLE [Suspect]
     Active Substance: ORNIDAZOLE
     Indication: ANTI-INFECTIVE THERAPY
     Dosage: 0.5 G, EVERY 12 HOURS
     Route: 065
  2. CEFOPERAZONE W/SULBACTAM [Suspect]
     Active Substance: CEFOPERAZONE\SULBACTAM
     Indication: ANTI-INFECTIVE THERAPY
     Route: 065
  3. LANSOPRAZOLE. [Suspect]
     Active Substance: LANSOPRAZOLE
     Indication: ANTI-INFECTIVE THERAPY
     Dosage: UNK UNK, UNKNOWN FREQ.
     Route: 065
  4. SODIUM CHLORIDE. [Suspect]
     Active Substance: SODIUM CHLORIDE
     Indication: ANTI-INFECTIVE THERAPY
     Route: 042
  5. PIPERACILLIN AND TAZOBACTAM [Suspect]
     Active Substance: PIPERACILLIN SODIUM\TAZOBACTAM SODIUM
     Indication: ANTI-INFECTIVE THERAPY
     Route: 042
  6. MICAFUNGIN [Suspect]
     Active Substance: MICAFUNGIN
     Indication: ANTI-INFECTIVE THERAPY
     Route: 042
  7. CLINDAMYCIN PHOSPHATE. [Suspect]
     Active Substance: CLINDAMYCIN PHOSPHATE
     Indication: ANTI-INFECTIVE THERAPY
     Dosage: 0.6 G, UNKNOWN FREQ.
     Route: 065

REACTIONS (3)
  - Hiccups [Recovered/Resolved]
  - Body temperature abnormal [Unknown]
  - White blood cell count decreased [Unknown]
